FAERS Safety Report 7132076-5 (Version None)
Quarter: 2010Q4

REPORT INFORMATION
  Report Type: 
  Country: None (occurrence: None)
  Receive Date: 20101202
  Receipt Date: 20101119
  Transmission Date: 20110411
  Serious: Yes (Other)
  Sender: FDA-Public Use
  Company Number: PHFR2010GB02300

PATIENT
  Sex: Male

DRUGS (5)
  1. CLOZARIL [Suspect]
     Dosage: UNK
     Dates: start: 20060509
  2. CLOZARIL [Suspect]
     Dosage: 50 MG, QD
     Dates: start: 20100815
  3. CLOZARIL [Suspect]
     Dosage: 100 MG, QD
     Dates: start: 20100816
  4. CLOZARIL [Suspect]
     Dosage: 150 MG, QD
     Dates: start: 20100817
  5. CLOZARIL [Suspect]
     Dosage: 200 MG, QD
     Dates: start: 20100818

REACTIONS (1)
  - DRUG DOSE OMISSION [None]
